FAERS Safety Report 21043874 (Version 1)
Quarter: 2022Q3

REPORT INFORMATION
  Report Type: Spontaneous
  Country: US (occurrence: None)
  Receive Date: 20220701
  Receipt Date: 20220701
  Transmission Date: 20221027
  Serious: No
  Sender: FDA-Public Use
  Company Number: None

PATIENT
  Age: 64 Year
  Sex: Female
  Weight: 90.45 kg

DRUGS (14)
  1. REPATHA [Suspect]
     Active Substance: EVOLOCUMAB
     Indication: Hyperlipidaemia
     Dosage: FREQUENCY : EVERY OTHER WEEK;?
     Route: 058
  2. ALDACTONE [Concomitant]
     Active Substance: SPIRONOLACTONE
  3. LASIX [Concomitant]
     Active Substance: FUROSEMIDE
  4. DEXILANT [Concomitant]
     Active Substance: DEXLANSOPRAZOLE
  5. LORAZEPAM [Concomitant]
     Active Substance: LORAZEPAM
  6. TRAMADOL HYDROCHLORIDE [Concomitant]
     Active Substance: TRAMADOL HYDROCHLORIDE
  7. OMEPRAZOLE [Concomitant]
     Active Substance: OMEPRAZOLE
  8. ONDANSETRON [Concomitant]
     Active Substance: ONDANSETRON
  9. LIBRAX [Concomitant]
     Active Substance: CHLORDIAZEPOXIDE HYDROCHLORIDE\CLIDINIUM BROMIDE
  10. METOPROLOL [Concomitant]
     Active Substance: METOPROLOL
  11. SUCRALFATE [Concomitant]
     Active Substance: SUCRALFATE
  12. MONTELUKAST [Concomitant]
     Active Substance: MONTELUKAST SODIUM
  13. KEFLEX [Concomitant]
     Active Substance: CEPHALEXIN
  14. PHENAZOPYRIDINE [Concomitant]
     Active Substance: PHENAZOPYRIDINE

REACTIONS (3)
  - Injection site bruising [None]
  - Injection site swelling [None]
  - Arthralgia [None]

NARRATIVE: CASE EVENT DATE: 20220630
